FAERS Safety Report 7207141-4 (Version None)
Quarter: 2011Q1

REPORT INFORMATION
  Report Type: 
  Country: None (occurrence: None)
  Receive Date: 20110103
  Receipt Date: 20101220
  Transmission Date: 20110831
  Serious: Yes (Hospitalization)
  Sender: FDA-Public Use
  Company Number: HK-ROCHE-647784

PATIENT
  Sex: Male
  Weight: 62.5 kg

DRUGS (3)
  1. ERLOTINIB [Suspect]
     Indication: NON-SMALL CELL LUNG CANCER
     Dosage: 150 MG, QD
     Route: 048
     Dates: start: 20080214
  2. BEVACIZUMAB [Suspect]
     Indication: NON-SMALL CELL LUNG CANCER
     Dosage: 960 MG, Q3W
     Route: 042
     Dates: start: 20071109, end: 20090610
  3. BEVACIZUMAB [Suspect]
     Dosage: 960 MG, Q3W
     Route: 042
     Dates: start: 20071109, end: 20090610

REACTIONS (1)
  - HAEMANGIOMA [None]
